FAERS Safety Report 12556914 (Version 1)
Quarter: 2016Q3

REPORT INFORMATION
  Report Type: Spontaneous
  Country: JP (occurrence: JP)
  Receive Date: 20160714
  Receipt Date: 20160714
  Transmission Date: 20161109
  Serious: Yes (Hospitalization)
  Sender: FDA-Public Use
  Company Number: JP-WARNER CHILCOTT 2016-001212

PATIENT
  Age: 19 Year
  Sex: Male

DRUGS (3)
  1. ACTONEL [Suspect]
     Active Substance: RISEDRONATE SODIUM
     Indication: OSTEOPOROSIS PROPHYLAXIS
     Route: 048
     Dates: start: 20160524
  2. PREDONINE [Suspect]
     Active Substance: PREDNISOLONE\PREDNISOLONE ACETATE\PREDNISOLONE SODIUM SUCCINATE
     Dates: start: 20160517
  3. PARIET [Suspect]
     Active Substance: RABEPRAZOLE SODIUM

REACTIONS (5)
  - Dyspnoea [None]
  - Nausea [None]
  - Hepatic function abnormal [None]
  - Pyrexia [None]
  - Purpura [None]
